FAERS Safety Report 11632499 (Version 1)
Quarter: 2015Q4

REPORT INFORMATION
  Report Type: Spontaneous
  Country: US (occurrence: US)
  Receive Date: 20151015
  Receipt Date: 20151015
  Transmission Date: 20160304
  Serious: Yes (Other)
  Sender: FDA-Public Use
  Company Number: US-009507513-1510USA005152

PATIENT

DRUGS (1)
  1. EMEND [Suspect]
     Active Substance: APREPITANT
     Dosage: UNK
     Dates: start: 201509, end: 2015

REACTIONS (1)
  - Hypersensitivity [Recovering/Resolving]

NARRATIVE: CASE EVENT DATE: 201509
